FAERS Safety Report 21853502 (Version 5)
Quarter: 2023Q2

REPORT INFORMATION
  Report Type: Report from Study
  Country: US (occurrence: US)
  Receive Date: 20230112
  Receipt Date: 20230609
  Transmission Date: 20230721
  Serious: Yes (Hospitalization, Other)
  Sender: FDA-Public Use
  Company Number: US-ABBVIE-4265998

PATIENT
  Age: 20 Year
  Sex: Male
  Weight: 78 kg

DRUGS (2)
  1. HUMIRA [Suspect]
     Active Substance: ADALIMUMAB
     Indication: Crohn^s disease
     Dosage: CITRATE FREE,?FORM STRENGTH 40 MG
     Route: 058
     Dates: start: 20220707
  2. HUMIRA [Suspect]
     Active Substance: ADALIMUMAB
     Dosage: DOSE INCREASED?CITRATE FREE,?FORM STRENGTH 40 MG 0.4ML?2 PKG
     Route: 058
     Dates: end: 202304

REACTIONS (7)
  - Intestinal obstruction [Recovered/Resolved]
  - Drug level abnormal [Unknown]
  - Intestinal obstruction [Recovered/Resolved]
  - White blood cell count increased [Unknown]
  - Pharyngitis streptococcal [Unknown]
  - Drug ineffective [Not Recovered/Not Resolved]
  - Crohn^s disease [Unknown]

NARRATIVE: CASE EVENT DATE: 20230101
